FAERS Safety Report 8904027 (Version 1)
Quarter: 2012Q4

REPORT INFORMATION
  Report Type: 
  Country: US (occurrence: US)
  Receive Date: 20121112
  Receipt Date: 20121112
  Transmission Date: 20130627
  Serious: Yes (Hospitalization, Other)
  Sender: FDA-Public Use
  Company Number: US-ABBOTT-12P-163-1005977-00

PATIENT
  Age: 17 Year
  Sex: Female
  Weight: 45.6 kg

DRUGS (16)
  1. HYDROCODONE/ACETAMINOPHEN [Suspect]
     Indication: PRODUCT USED FOR UNKNOWN INDICATION
  2. VELCADE [Suspect]
     Indication: ACUTE MYELOID LEUKAEMIA
     Dosage: 1 mg/m2, cyclic, IV bolus
     Dates: start: 20120918, end: 20120925
  3. VELCADE [Suspect]
     Dosage: 1.3 mg/m2, cyclic, IV bolus
     Dates: start: 20120609
  4. CYTARABINE [Suspect]
     Indication: ACUTE MYELOID LEUKAEMIA
     Dosage: 1000 mg/m2, Cyclic
     Route: 042
     Dates: start: 20120918, end: 20120922
  5. CYTARABINE [Suspect]
     Dosage: Cyclic
     Route: 037
     Dates: start: 20120609, end: 20120922
  6. DAUNORUBICIN HYDROCHLORIDE [Suspect]
     Dosage: 50 mg/m2, cyclic
     Route: 042
     Dates: start: 20120609, end: 20120619
  7. ETOPOSIDE [Suspect]
     Indication: ACUTE MYELOID LEUKAEMIA
     Dosage: 150 mg/m2, cyclic
     Route: 042
     Dates: start: 20120918, end: 20120922
  8. ETOPOSIDE [Suspect]
     Dosage: 100 mg/m2, cyclic
     Route: 042
     Dates: start: 20120609
  9. DOXORUBICIN [Suspect]
     Indication: ACUTE MYELOID LEUKAEMIA
     Dosage: 50 UNK
     Route: 042
  10. DEXAMETHASONE [Suspect]
     Indication: PRODUCT USED FOR UNKNOWN INDICATION
     Dosage: Cyclic
     Route: 042
  11. LEVOFLOXACIN [Suspect]
     Indication: PRODUCT USED FOR UNKNOWN INDICATION
  12. DIPHENHYDRAMINE [Suspect]
     Indication: PRODUCT USED FOR UNKNOWN INDICATION
  13. METRONIDAZOLE [Suspect]
     Indication: PRODUCT USED FOR UNKNOWN INDICATION
  14. LORAZEPAM [Suspect]
     Indication: PRODUCT USED FOR UNKNOWN INDICATION
  15. VORICONAZOLE [Suspect]
     Indication: PRODUCT USED FOR UNKNOWN INDICATION
  16. HYDROMORPHONE HCL [Suspect]
     Indication: PRODUCT USED FOR UNKNOWN INDICATION

REACTIONS (13)
  - Hypokalaemia [Recovering/Resolving]
  - Hypotension [Recovering/Resolving]
  - Blood bilirubin increased [Unknown]
  - Leukoencephalopathy [Recovered/Resolved]
  - Adrenal insufficiency [Recovering/Resolving]
  - Clostridium difficile colitis [Unknown]
  - Vasodilatation [Unknown]
  - Skin exfoliation [Unknown]
  - Mental status changes [Unknown]
  - Convulsion [Recovered/Resolved]
  - Decreased appetite [Unknown]
  - Bilirubin conjugated increased [None]
  - Neuropathy peripheral [None]
